FAERS Safety Report 15811265 (Version 1)
Quarter: 2019Q1

REPORT INFORMATION
  Report Type: Spontaneous
  Country: US (occurrence: US)
  Receive Date: 20190111
  Receipt Date: 20190111
  Transmission Date: 20190417
  Serious: No
  Sender: FDA-Public Use
  Company Number: US-BIOGEN-2018BI00666634

PATIENT
  Age: 51 Year
  Sex: Female

DRUGS (1)
  1. TECFIDERA [Suspect]
     Active Substance: DIMETHYL FUMARATE
     Indication: MULTIPLE SCLEROSIS
     Route: 048
     Dates: start: 201811

REACTIONS (11)
  - Rash [Unknown]
  - Asthenia [Unknown]
  - Dysphagia [Unknown]
  - Chills [Unknown]
  - Fatigue [Unknown]
  - Decreased appetite [Unknown]
  - Memory impairment [Unknown]
  - Abdominal pain [Unknown]
  - Pruritus [Unknown]
  - Oropharyngeal pain [Unknown]
  - Depression [Unknown]

NARRATIVE: CASE EVENT DATE: 20181128
